FAERS Safety Report 7286202-8 (Version None)
Quarter: 2011Q1

REPORT INFORMATION
  Report Type: 
  Country: None (occurrence: None)
  Receive Date: 20110131
  Receipt Date: 20110124
  Transmission Date: 20110831
  Serious: Yes (Other)
  Sender: FDA-Public Use
  Company Number: JPI-P-013669

PATIENT
  Age: 17 Year
  Sex: Male

DRUGS (2)
  1. XYREM [Suspect]
     Indication: NARCOLEPSY
     Dosage: 6 GM (3 GM,2 IN 1 D), ORAL;  (4 GM FIRST DOSE/3.5 GM SECOND DOSE), ORAL
     Route: 048
     Dates: start: 20100727
  2. XYREM [Suspect]
     Indication: NARCOLEPSY
     Dosage: 6 GM (3 GM,2 IN 1 D), ORAL;  (4 GM FIRST DOSE/3.5 GM SECOND DOSE), ORAL
     Route: 048
     Dates: start: 20100615, end: 20100726

REACTIONS (5)
  - JOINT INJURY [None]
  - DECREASED APPETITE [None]
  - DIARRHOEA [None]
  - BOWEL MOVEMENT IRREGULARITY [None]
  - WEIGHT DECREASED [None]
